FAERS Safety Report 9411976 (Version 1)
Quarter: 2013Q3

REPORT INFORMATION
  Report Type: Spontaneous
  Country: DE (occurrence: DE)
  Receive Date: 20130722
  Receipt Date: 20130722
  Transmission Date: 20140515
  Serious: Yes (Hospitalization, Other)
  Sender: FDA-Public Use
  Company Number: DE-JNJFOC-20130403534

PATIENT
  Age: 73 Year
  Sex: Male
  Weight: 92 kg

DRUGS (2)
  1. XARELTO [Suspect]
     Indication: CEREBROVASCULAR ACCIDENT PROPHYLAXIS
     Route: 065
     Dates: start: 201304, end: 201304
  2. XARELTO [Suspect]
     Indication: CARDIAC FIBRILLATION
     Route: 065
     Dates: start: 201304, end: 201304

REACTIONS (2)
  - Blood urine present [Unknown]
  - Dermatitis allergic [Recovered/Resolved]
